FAERS Safety Report 14745715 (Version 15)
Quarter: 2021Q2

REPORT INFORMATION
  Report Type: Spontaneous
  Country: DE (occurrence: DE)
  Receive Date: 20180411
  Receipt Date: 20210416
  Transmission Date: 20210716
  Serious: Yes (Congenital Anomaly, Other)
  Sender: FDA-Public Use
  Company Number: PHHY2018DE059069

PATIENT
  Sex: Male
  Weight: 2.9 kg

DRUGS (8)
  1. ACETAMINOPHEN (PARACETAMOL) [Suspect]
     Active Substance: ACETAMINOPHEN
     Indication: FOETAL EXPOSURE DURING PREGNANCY
     Dosage: MATERNAL DOSE: GESTATIONAL WEEK OF EXPOSURE? 17?21
     Route: 064
  2. DICLOFENAC SODIUM. [Suspect]
     Active Substance: DICLOFENAC SODIUM
     Indication: FOETAL EXPOSURE DURING PREGNANCY
     Dosage: MATERNAL DOSE: 100 MG, PRN, AS NEEDED, GESTSTIONAL WEEK OF EXPOSURE 0?19 PLUS 4
     Route: 064
  3. OMEPRAZOLE. [Suspect]
     Active Substance: OMEPRAZOLE
     Indication: FOETAL EXPOSURE DURING PREGNANCY
     Dosage: MATERNAL DOSE: FROM 0 TO 4 GESTATIONAL WEEK
     Route: 064
  4. LEVOTHYROXINE. [Suspect]
     Active Substance: LEVOTHYROXINE
     Indication: FOETAL EXPOSURE DURING PREGNANCY
     Dosage: MATERNAL DOSE: FROM 0 TO 27 GESTATIONAL WEEK
     Route: 064
  5. LYNESTRENOL [Suspect]
     Active Substance: LYNESTRENOL
     Indication: FOETAL EXPOSURE DURING PREGNANCY
     Dosage: MATERNAL DOSE: FROM 0 TO 4 GESTATIONAL WEEK
     Route: 064
  6. HYDROXYCHLOROQUINE SULFATE. [Suspect]
     Active Substance: HYDROXYCHLOROQUINE SULFATE
     Indication: FOETAL EXPOSURE DURING PREGNANCY
     Dosage: MATERNAL DOSE: GESTATIONAL WEEK OF EXPOSURE? 0?13
     Route: 064
  7. SULFASALAZINE. [Suspect]
     Active Substance: SULFASALAZINE
     Indication: FOETAL EXPOSURE DURING PREGNANCY
     Dosage: MATERNAL DOSE: GESTATIONAL WEEK OF EXPOSURE? 0?17
     Route: 064
  8. IBUPROFEN. [Suspect]
     Active Substance: IBUPROFEN
     Indication: FOETAL EXPOSURE DURING PREGNANCY
     Dosage: MATERNAL DOSE: FROM 0 TO 27 GESTATIONAL WEEK
     Route: 064

REACTIONS (11)
  - Atrial septal defect [Unknown]
  - Fragile X syndrome [Unknown]
  - Cryopyrin associated periodic syndrome [Unknown]
  - Cerebral atrophy congenital [Unknown]
  - Medium-chain acyl-coenzyme A dehydrogenase deficiency [Unknown]
  - Microcephaly [Unknown]
  - Pyloric stenosis [Unknown]
  - Splenomegaly [Unknown]
  - Pupils unequal [Unknown]
  - Trisomy 8 [Unknown]
  - Foetal exposure during pregnancy [Unknown]
